FAERS Safety Report 7414482-4 (Version None)
Quarter: 2011Q2

REPORT INFORMATION
  Report Type: 
  Country: None (occurrence: None)
  Receive Date: 20110414
  Receipt Date: 20110401
  Transmission Date: 20111010
  Serious: Yes (Other)
  Sender: FDA-Public Use
  Company Number: JP-JNJFOC-20110304828

PATIENT
  Sex: Male

DRUGS (5)
  1. TOPIRAMATE [Suspect]
     Indication: INFANTILE SPASMS
     Route: 048
  2. TOPIRAMATE [Suspect]
     Indication: CONVULSION
     Route: 048
  3. DEPAKENE [Suspect]
     Indication: CONVULSION
     Route: 048
  4. LAMICTAL [Concomitant]
     Indication: CONVULSION
     Route: 065
  5. DEPAKENE [Suspect]
     Indication: INFANTILE SPASMS
     Route: 048

REACTIONS (1)
  - FANCONI SYNDROME ACQUIRED [None]
